FAERS Safety Report 10560350 (Version 1)
Quarter: 2014Q4

REPORT INFORMATION
  Report Type: Spontaneous
  Country: ZA (occurrence: ZA)
  Receive Date: 20141103
  Receipt Date: 20141103
  Transmission Date: 20150529
  Serious: Yes (Other)
  Sender: FDA-Public Use
  Company Number: ZA-BAYER-2014-157771

PATIENT
  Age: 44 Year
  Sex: Female

DRUGS (1)
  1. CIPROBAY XR 1000 [Suspect]
     Active Substance: CIPROFLOXACIN
     Indication: URINARY TRACT INFECTION
     Dosage: 1000 MG, QD
     Route: 048
     Dates: start: 20140801, end: 20140808

REACTIONS (1)
  - Fracture delayed union [None]

NARRATIVE: CASE EVENT DATE: 201408
